FAERS Safety Report 19386036 (Version 1)
Quarter: 2021Q2

REPORT INFORMATION
  Report Type: Spontaneous
  Country: US (occurrence: US)
  Receive Date: 20210608
  Receipt Date: 20210608
  Transmission Date: 20210717
  Serious: Yes (Other)
  Sender: FDA-Public Use
  Company Number: US-AMGEN-USASP2021086542

PATIENT
  Age: 42 Year
  Sex: Male

DRUGS (2)
  1. OTEZLA [Suspect]
     Active Substance: APREMILAST
     Indication: PSORIATIC ARTHROPATHY
     Dosage: 30 MILLIGRAM, BID
     Route: 048
     Dates: start: 201909
  2. MELOXICAM. [Suspect]
     Active Substance: MELOXICAM
     Indication: PSORIATIC ARTHROPATHY
     Dosage: UNK
     Route: 065

REACTIONS (3)
  - Psoriatic arthropathy [Recovered/Resolved]
  - Palpitations [Recovered/Resolved]
  - Chest pain [Recovered/Resolved]

NARRATIVE: CASE EVENT DATE: 20210603
